FAERS Safety Report 24004814 (Version 1)
Quarter: 2024Q2

REPORT INFORMATION
  Report Type: Spontaneous
  Country: GB (occurrence: GB)
  Receive Date: 20240624
  Receipt Date: 20240624
  Transmission Date: 20240716
  Serious: Yes (Other)
  Sender: FDA-Public Use
  Company Number: GB-CELLTRION INC.-2024GB015011

PATIENT

DRUGS (3)
  1. INFLIXIMAB [Suspect]
     Active Substance: INFLIXIMAB
     Indication: Rheumatoid arthritis
     Dosage: 120 MG
     Route: 058
     Dates: start: 202311
  2. INFLIXIMAB [Suspect]
     Active Substance: INFLIXIMAB
     Dosage: STOPPED INJECTIONS MID-MARCH
     Route: 058
  3. INFLIXIMAB [Suspect]
     Active Substance: INFLIXIMAB
     Dosage: RESTARTED EARLY MAY
     Route: 058

REACTIONS (5)
  - Surgery [Unknown]
  - Hip fracture [Recovering/Resolving]
  - Fall [Recovering/Resolving]
  - Symptom recurrence [Unknown]
  - Intentional dose omission [Unknown]
